FAERS Safety Report 16777337 (Version 1)
Quarter: 2019Q3

REPORT INFORMATION
  Report Type: Spontaneous
  Country: CA (occurrence: CA)
  Receive Date: 20190905
  Receipt Date: 20190905
  Transmission Date: 20191005
  Serious: Yes (Hospitalization)
  Sender: FDA-Public Use
  Company Number: CA-AMERICAN REGENT INC-2019001937

PATIENT
  Age: 56 Year
  Sex: Female

DRUGS (1)
  1. VENOFER [Suspect]
     Active Substance: IRON SUCROSE
     Indication: ANAEMIA
     Dosage: 200 MILLIGRAM,1 EVERY 1 WEEK
     Route: 042

REACTIONS (3)
  - Pyrexia [Unknown]
  - Pain [Unknown]
  - Fatigue [Unknown]
